FAERS Safety Report 9510434 (Version 4)
Quarter: 2013Q4

REPORT INFORMATION
  Report Type: Spontaneous
  Country: GB (occurrence: GB)
  Receive Date: 20130909
  Receipt Date: 20131029
  Transmission Date: 20140711
  Serious: Yes (Other)
  Sender: FDA-Public Use
  Company Number: GB-VERTEX PHARMACEUTICALS INC-2013-008995

PATIENT
  Age: 21 Year
  Sex: Female
  Weight: 48 kg

DRUGS (14)
  1. KALYDECO [Suspect]
     Indication: CYSTIC FIBROSIS
     Dosage: 150 MG, TWICE WEEKLY
     Dates: start: 20130502, end: 20130820
  2. ITRACONAZOLE [Concomitant]
     Indication: BRONCHOPULMONARY ASPERGILLOSIS ALLERGIC
     Dosage: 200 MG, QD
  3. ESOMEPRAZOLE [Concomitant]
     Dosage: 40 MG, QD
  4. PRUCALOPRIDE [Concomitant]
     Dosage: 2 MG, QD
  5. FLUCLOXACILLIN [Concomitant]
     Dosage: 1 G, BID
  6. MULTIVITAMINS [Concomitant]
     Dosage: 3 DF, QD
  7. AZITHROMYCIN [Concomitant]
     Dosage: 500 MG, MWF
  8. SERETIDE [Concomitant]
     Dosage: 2 DF, BID
     Route: 055
  9. TIOTROPIUM [Concomitant]
     Dosage: 18 ?G, QD
  10. VITAMIN E [Concomitant]
     Dosage: 3 DF, QD
  11. SALBUTAMOL [Concomitant]
     Route: 055
  12. CREON 10000 [Concomitant]
  13. ACETYLCYSTEIN [Concomitant]
     Dosage: 600 MG, QD
  14. LAXIDO [Concomitant]
     Dosage: 1 DF, BID

REACTIONS (1)
  - Eosinophilia [Recovered/Resolved]
